FAERS Safety Report 14390300 (Version 3)
Quarter: 2018Q2

REPORT INFORMATION
  Report Type: Spontaneous
  Country: DE (occurrence: DE)
  Receive Date: 20180116
  Receipt Date: 20180426
  Transmission Date: 20180711
  Serious: Yes (Death, Other)
  Sender: FDA-Public Use
  Company Number: DE-SUN PHARMACEUTICAL INDUSTRIES LTD-2018RR-159159

PATIENT
  Age: 41 Year
  Sex: Male

DRUGS (2)
  1. TRIMIPRAMINE [Suspect]
     Active Substance: TRIMIPRAMINE
     Indication: PRODUCT USED FOR UNKNOWN INDICATION
     Dosage: REGULAR MEDICATION
     Route: 065
  2. OLANZAPINE. [Suspect]
     Active Substance: OLANZAPINE
     Indication: PRODUCT USED FOR UNKNOWN INDICATION
     Dosage: REGULAR MEDICATION
     Route: 065

REACTIONS (10)
  - Brain oedema [Fatal]
  - Oxygen saturation decreased [Fatal]
  - Coma [Fatal]
  - Haemorrhage [Fatal]
  - Toxicity to various agents [Fatal]
  - Pulmonary oedema [Fatal]
  - Visceral congestion [Fatal]
  - Drug interaction [Fatal]
  - Pulmonary haemorrhage [Fatal]
  - Aspiration [Fatal]

NARRATIVE: CASE EVENT DATE: 201602
